FAERS Safety Report 9946501 (Version 1)
Quarter: 2014Q1

REPORT INFORMATION
  Report Type: Spontaneous
  Country: US (occurrence: US)
  Receive Date: 20140303
  Receipt Date: 20140303
  Transmission Date: 20141002
  Serious: No
  Sender: FDA-Public Use
  Company Number: US-009507513-1402USA010930

PATIENT
  Sex: Male

DRUGS (3)
  1. DULERA [Suspect]
     Indication: DYSPNOEA
     Dosage: 2 PUFFS TWICE DAILY
     Route: 055
     Dates: start: 20140103
  2. DULERA [Suspect]
     Indication: CHRONIC OBSTRUCTIVE PULMONARY DISEASE
  3. DULERA [Suspect]
     Indication: PULMONARY CONGESTION

REACTIONS (3)
  - Dyspnoea [Recovering/Resolving]
  - Drug dose omission [Unknown]
  - Product quality issue [Unknown]
